FAERS Safety Report 5400966-7 (Version None)
Quarter: 2007Q3

REPORT INFORMATION
  Report Type: 
  Country: None (occurrence: None)
  Receive Date: 20070730
  Receipt Date: 20070719
  Transmission Date: 20080115
  Serious: Yes (Other)
  Sender: FDA-Public Use
  Company Number: US-AMGEN-STX234870

PATIENT
  Sex: Female

DRUGS (1)
  1. ENBREL [Suspect]
     Indication: PSORIASIS
     Route: 065
     Dates: start: 20060901

REACTIONS (3)
  - LIVER FUNCTION TEST ABNORMAL [None]
  - MEAN CELL HAEMOGLOBIN [None]
  - MEAN CELL VOLUME INCREASED [None]
